FAERS Safety Report 21602073 (Version 1)
Quarter: 2022Q4

REPORT INFORMATION
  Report Type: Spontaneous
  Country: US (occurrence: US)
  Receive Date: 20221116
  Receipt Date: 20221116
  Transmission Date: 20230112
  Serious: No
  Sender: FDA-Public Use
  Company Number: US-BRISTOL-MYERS SQUIBB COMPANY-2022-137809

PATIENT
  Age: 68 Year
  Sex: Female
  Weight: 122.47 kg

DRUGS (8)
  1. ELIQUIS [Suspect]
     Active Substance: APIXABAN
     Indication: Cerebrovascular accident prophylaxis
     Route: 048
     Dates: start: 2022
  2. Lotepednol etabonate Osmalic [Concomitant]
     Indication: Product used for unknown indication
     Dosage: .5 - EYE DROPS
     Route: 065
  3. CEQUA [Concomitant]
     Active Substance: CYCLOSPORINE
     Indication: Product used for unknown indication
     Dosage: EYE DROPS
     Route: 065
  4. ZYRTEC [Concomitant]
     Active Substance: CETIRIZINE HYDROCHLORIDE
     Indication: Product used for unknown indication
     Route: 065
  5. VITAMIN D [Concomitant]
     Active Substance: VITAMIN D NOS
     Indication: Product used for unknown indication
     Route: 065
  6. VITAMINS [Concomitant]
     Active Substance: VITAMINS
     Indication: Product used for unknown indication
     Route: 065
  7. REFRESH MEGA OPTIVE MEGA 3 [Concomitant]
     Indication: Product used for unknown indication
     Route: 065
  8. FLONASE [Concomitant]
     Active Substance: FLUTICASONE PROPIONATE
     Indication: Product used for unknown indication
     Route: 065

REACTIONS (3)
  - Memory impairment [Unknown]
  - Speech disorder [Unknown]
  - Dry eye [Unknown]

NARRATIVE: CASE EVENT DATE: 20220101
